FAERS Safety Report 9357979 (Version 1)
Quarter: 2013Q2

REPORT INFORMATION
  Report Type: Spontaneous
  Country: US (occurrence: US)
  Receive Date: 20130620
  Receipt Date: 20130620
  Transmission Date: 20140414
  Serious: No
  Sender: FDA-Public Use
  Company Number: US-PFIZER INC-2013179056

PATIENT
  Age: 30 Year
  Sex: Female
  Weight: 54 kg

DRUGS (3)
  1. QUILLIVANT XR [Suspect]
     Indication: ATTENTION DEFICIT/HYPERACTIVITY DISORDER
     Dosage: UNK, DAILY
     Dates: start: 20130612
  2. LEXAPRO [Concomitant]
     Dosage: 10 MG, DAILY
  3. CLONOPIN [Concomitant]
     Dosage: 0.5 MG, DAILY

REACTIONS (1)
  - Reaction to drug excipients [Unknown]
